FAERS Safety Report 8258492-6 (Version None)
Quarter: 2012Q2

REPORT INFORMATION
  Report Type: 
  Country: None (occurrence: None)
  Receive Date: 20120404
  Receipt Date: 20120329
  Transmission Date: 20120825
  Serious: Yes (Disabling)
  Sender: FDA-Public Use
  Company Number: DK-GE HEALTHCARE MEDICAL DIAGNOSTICS-OSCN-NO-0701S-0038

PATIENT
  Sex: Male
  Weight: 66 kg

DRUGS (1)
  1. OMNISCAN [Suspect]
     Indication: PRODUCT USED FOR UNKNOWN INDICATION
     Route: 042
     Dates: start: 20040616, end: 20040616

REACTIONS (19)
  - GRIP STRENGTH DECREASED [None]
  - JOINT STIFFNESS [None]
  - PARAESTHESIA [None]
  - MUSCLE ATROPHY [None]
  - PRURITUS GENERALISED [None]
  - JOINT RANGE OF MOTION DECREASED [None]
  - HAEMODIALYSIS [None]
  - SKIN HYPERTROPHY [None]
  - ECZEMA [None]
  - NEPHROGENIC SYSTEMIC FIBROSIS [None]
  - OEDEMA PERIPHERAL [None]
  - PAIN IN EXTREMITY [None]
  - GAIT DISTURBANCE [None]
  - HYPOKINESIA [None]
  - FIBROSIS [None]
  - ARTHRALGIA [None]
  - SKIN EXFOLIATION [None]
  - SKIN DISORDER [None]
  - SKIN DISCOLOURATION [None]
